APPROVED DRUG PRODUCT: PROBENECID
Active Ingredient: PROBENECID
Strength: 500MG
Dosage Form/Route: TABLET;ORAL
Application: A086150 | Product #002
Applicant: WATSON LABORATORIES INC
Approved: Apr 23, 1982 | RLD: No | RS: No | Type: DISCN